FAERS Safety Report 6667354-7 (Version None)
Quarter: 2010Q2

REPORT INFORMATION
  Report Type: 
  Country: None (occurrence: None)
  Receive Date: 20100405
  Receipt Date: 20100326
  Transmission Date: 20101027
  Serious: Yes (Hospitalization)
  Sender: FDA-Public Use
  Company Number: US-ABBOTT-10P-163-0634170-00

PATIENT
  Sex: Female
  Weight: 99.88 kg

DRUGS (20)
  1. DEPAKOTE [Suspect]
     Indication: SCHIZOAFFECTIVE DISORDER
     Dosage: 750MG IN A.M. AND 500MG X 2 QHS QHS
     Route: 048
     Dates: start: 20020101, end: 20100301
  2. DEPAKOTE [Suspect]
     Route: 048
     Dates: start: 20100301
  3. SEROQUEL [Suspect]
     Indication: SCHIZOAFFECTIVE DISORDER
     Dosage: 300 MG DAILY
     Dates: start: 20100301
  4. SEROQUEL [Suspect]
     Dosage: 450 MG DAILY, GIVEN IN MULITPLE DOSES, MULTIPLE TIMES A DAY
     Dates: end: 20100301
  5. VITAMIN D [Concomitant]
     Indication: VITAMIN SUPPLEMENTATION
  6. VITAMIN E [Concomitant]
     Indication: VITAMIN SUPPLEMENTATION
  7. ULTRAM [Concomitant]
     Indication: PAIN IN EXTREMITY
  8. THERAPEUTIC [Concomitant]
     Indication: DRUG USE FOR UNKNOWN INDICATION
  9. SYNTHROID [Concomitant]
     Indication: DRUG USE FOR UNKNOWN INDICATION
     Route: 048
  10. SIMVASTATIN [Concomitant]
     Indication: DRUG USE FOR UNKNOWN INDICATION
     Route: 048
  11. LOVAZA [Concomitant]
     Indication: DRUG USE FOR UNKNOWN INDICATION
  12. LASIX [Concomitant]
     Indication: DRUG USE FOR UNKNOWN INDICATION
  13. HALOPERIDOL [Concomitant]
     Indication: SCHIZOAFFECTIVE DISORDER
  14. METAMUCIL-2 [Concomitant]
     Indication: DRUG USE FOR UNKNOWN INDICATION
  15. REMERON [Concomitant]
     Indication: SCHIZOAFFECTIVE DISORDER
  16. PRILOSEC [Concomitant]
     Indication: DRUG USE FOR UNKNOWN INDICATION
  17. KLONOPIN [Concomitant]
     Indication: SCHIZOAFFECTIVE DISORDER
  18. ATIVAN [Concomitant]
     Indication: SCHIZOAFFECTIVE DISORDER
  19. MILK OF MAGNESIA TAB [Concomitant]
     Indication: DRUG USE FOR UNKNOWN INDICATION
  20. COLACE [Concomitant]
     Indication: DRUG USE FOR UNKNOWN INDICATION

REACTIONS (10)
  - ASTHENIA [None]
  - CELLULITIS [None]
  - GLUCOSE TOLERANCE IMPAIRED [None]
  - LISTLESS [None]
  - OEDEMA PERIPHERAL [None]
  - PULMONARY THROMBOSIS [None]
  - SEDATION [None]
  - THROMBOSIS [None]
  - VITAMIN D DECREASED [None]
  - WEIGHT DECREASED [None]
